FAERS Safety Report 8045140-3 (Version None)
Quarter: 2012Q1

REPORT INFORMATION
  Report Type: 
  Country: None (occurrence: None)
  Receive Date: 20120113
  Receipt Date: 20110811
  Transmission Date: 20120608
  Serious: Yes (Hospitalization)
  Sender: FDA-Public Use
  Company Number: US-ASTRAZENECA-2011SE06974

PATIENT
  Age: 53 Year
  Sex: Female
  Weight: 53.1 kg

DRUGS (7)
  1. SEROQUEL XR [Suspect]
     Indication: BIPOLAR DISORDER
     Route: 048
     Dates: end: 20110207
  2. PREMARIN [Concomitant]
     Indication: MUCOSAL DRYNESS
  3. ZOLOFT [Concomitant]
     Indication: BIPOLAR DISORDER
  4. CLONAZEPAM [Concomitant]
  5. LISINOPRIL [Concomitant]
     Indication: HYPERTENSION
  6. SEROQUEL XR [Suspect]
     Route: 048
     Dates: start: 20110207
  7. PREMARIN [Concomitant]
     Indication: HAEMORRHOIDAL HAEMORRHAGE

REACTIONS (21)
  - JOINT STIFFNESS [None]
  - CONTUSION [None]
  - VISION BLURRED [None]
  - MYALGIA [None]
  - FIBROMYALGIA [None]
  - CHEST X-RAY ABNORMAL [None]
  - PNEUMONIA [None]
  - HYPOAESTHESIA [None]
  - WEIGHT DECREASED [None]
  - BALANCE DISORDER [None]
  - DYSPHAGIA [None]
  - THROAT TIGHTNESS [None]
  - CHILLS [None]
  - WEIGHT INCREASED [None]
  - HYPOKINESIA [None]
  - PAIN [None]
  - PYREXIA [None]
  - PARAESTHESIA [None]
  - ABDOMINAL PAIN [None]
  - DIARRHOEA [None]
  - MUSCULOSKELETAL STIFFNESS [None]
